FAERS Safety Report 4619601-0 (Version None)
Quarter: 2005Q2

REPORT INFORMATION
  Report Type: 
  Country: None (occurrence: None)
  Receive Date: 20050321
  Receipt Date: 20040618
  Transmission Date: 20051028
  Serious: Yes (Other)
  Sender: FDA-Public Use
  Company Number: 2004-06-1581

PATIENT
  Age: 16 Year
  Sex: Male
  Weight: 67 kg

DRUGS (8)
  1. PEG-INTRON [Suspect]
     Indication: HEPATITIS C
     Dosage: 96 MCG SUBCUTANEOUS
     Route: 058
     Dates: start: 20030821, end: 20040115
  2. REBETOL [Suspect]
     Indication: HEPATITIS C
     Dosage: 200 MG BID ORAL
     Route: 048
     Dates: start: 20030821, end: 20040115
  3. LISINOPRIL [Concomitant]
  4. ZOLOFT [Concomitant]
  5. SEROQUEL (QUETIAPINE FUMURATE) [Concomitant]
  6. LANTUS [Concomitant]
  7. HUMALOG (INSULIN ANALOG) [Concomitant]
  8. WELLBUTRIN SR [Concomitant]

REACTIONS (2)
  - DEAFNESS NEUROSENSORY [None]
  - RETINAL VEIN OCCLUSION [None]
